FAERS Safety Report 10222828 (Version 1)
Quarter: 2014Q2

REPORT INFORMATION
  Report Type: Spontaneous
  Country: CN (occurrence: CN)
  Receive Date: 20140606
  Receipt Date: 20140606
  Transmission Date: 20141212
  Serious: Yes (Death)
  Sender: FDA-Public Use
  Company Number: CN-ASTRAZENECA-2014SE38730

PATIENT
  Age: 3199 Day
  Sex: Male
  Weight: 21 kg

DRUGS (6)
  1. BUDESONIDE [Suspect]
     Indication: PRODUCT USED FOR UNKNOWN INDICATION
     Route: 055
     Dates: start: 20131212, end: 20131212
  2. CEFOTIAM HYDROCHLORIDE [Suspect]
     Indication: BRONCHOPNEUMONIA
     Route: 042
     Dates: start: 20131211, end: 20131212
  3. AMBROXOL HYDROCHLORIDE [Suspect]
     Indication: PRODUCT USED FOR UNKNOWN INDICATION
     Route: 065
     Dates: start: 20131211, end: 20131212
  4. RIBAVIRIN [Suspect]
     Indication: PRODUCT USED FOR UNKNOWN INDICATION
     Route: 065
     Dates: start: 20131211, end: 20131212
  5. SODIUM CHLORIDE INJECTION [Concomitant]
     Indication: PRODUCT USED FOR UNKNOWN INDICATION
     Dates: start: 20131211, end: 20131212
  6. VITAMIN C INJECTION [Concomitant]
     Indication: PRODUCT USED FOR UNKNOWN INDICATION
     Route: 042
     Dates: start: 20131212, end: 20131212

REACTIONS (2)
  - Anaphylactic shock [Fatal]
  - Pulmonary oedema [Fatal]
